FAERS Safety Report 9856924 (Version 2)
Quarter: 2014Q1

REPORT INFORMATION
  Report Type: Spontaneous
  Country: IE (occurrence: IE)
  Receive Date: 20140130
  Receipt Date: 20140305
  Transmission Date: 20141002
  Serious: Yes (Hospitalization, Other)
  Sender: FDA-Public Use
  Company Number: PHFR2014IE001040

PATIENT
  Age: 60 Year
  Sex: Male

DRUGS (10)
  1. CLOZARIL [Suspect]
     Indication: SCHIZOPHRENIA
     Dosage: UNK
     Route: 048
     Dates: start: 20071205
  2. CLOZARIL [Suspect]
     Dosage: 325 MG, DAILY
     Route: 048
  3. MIRTAZAPINE [Concomitant]
     Dosage: UNK
  4. VENLAFAXINE [Concomitant]
     Dosage: UNK
  5. PROCYCLIDINE [Concomitant]
     Dosage: UNK
  6. AMISULPRIDE [Concomitant]
     Dosage: UNK
  7. SIMVASTATIN [Concomitant]
     Dosage: UNK
  8. OMEPRAZOLE [Concomitant]
     Dosage: UNK
  9. SINEMET [Concomitant]
     Dosage: UNK
  10. IPRAMOL [Concomitant]
     Dosage: UNK

REACTIONS (5)
  - Haemoptysis [Recovering/Resolving]
  - Parkinson^s disease [Not Recovered/Not Resolved]
  - Type 2 diabetes mellitus [Not Recovered/Not Resolved]
  - White blood cell count increased [Recovered/Resolved]
  - Neutrophil count increased [Unknown]
